FAERS Safety Report 5473883-4 (Version None)
Quarter: 2007Q3

REPORT INFORMATION
  Report Type: 
  Country: None (occurrence: None)
  Receive Date: 20070831
  Receipt Date: 20070626
  Transmission Date: 20080115
  Serious: No
  Sender: FDA-Public Use
  Company Number: 243625

PATIENT
  Age: 86 Year
  Sex: Female

DRUGS (8)
  1. LUCENTIS [Suspect]
     Indication: DRUG USE FOR UNKNOWN INDICATION
     Dates: start: 20070614
  2. ACCUPRIL [Concomitant]
  3. SYNTHROID [Concomitant]
  4. HYDROCHLOROTHIAZIDE [Concomitant]
  5. LASIX [Concomitant]
  6. ACIPHEX [Concomitant]
  7. POTASSIUM CHLORIDE [Concomitant]
  8. TRENTAL [Concomitant]

REACTIONS (1)
  - VISUAL DISTURBANCE [None]
